FAERS Safety Report 24638782 (Version 3)
Quarter: 2024Q4

REPORT INFORMATION
  Report Type: Report from Study
  Country: DE (occurrence: DE)
  Receive Date: 20241119
  Receipt Date: 20241129
  Transmission Date: 20250115
  Serious: Yes (Death, Life-Threatening, Hospitalization)
  Sender: REGENERON
  Company Number: DE-REGENERON PHARMACEUTICALS, INC.-2024-115089

PATIENT
  Age: 76 Year
  Sex: Female

DRUGS (4)
  1. CEMIPLIMAB [Suspect]
     Active Substance: CEMIPLIMAB
     Indication: Non-small cell lung cancer
     Dosage: 350 MG, Q3W
     Route: 042
     Dates: start: 20240704, end: 20240725
  2. PREGABALIN [Concomitant]
     Active Substance: PREGABALIN
     Indication: Pain in extremity
     Dosage: 100 MG
     Route: 048
     Dates: start: 20240624, end: 20240814
  3. HYDROMORPHONE [Concomitant]
     Active Substance: HYDROMORPHONE
     Indication: Pain in extremity
     Dosage: 8 MG
     Route: 048
     Dates: start: 20240624, end: 20240814
  4. METAMIZOLE [Concomitant]
     Active Substance: METAMIZOLE
     Indication: Pain in extremity
     Dosage: 500 MG
     Route: 048
     Dates: start: 20240621, end: 20240814

REACTIONS (3)
  - Hepatic failure [Fatal]
  - Autoimmune hepatitis [Fatal]
  - Pneumonitis [Recovered/Resolved]

NARRATIVE: CASE EVENT DATE: 20240813
